FAERS Safety Report 9920302 (Version 1)
Quarter: 2014Q1

REPORT INFORMATION
  Report Type: Spontaneous
  Country: IT (occurrence: IT)
  Receive Date: 20140224
  Receipt Date: 20140224
  Transmission Date: 20141002
  Serious: Yes (Other)
  Sender: FDA-Public Use
  Company Number: IT-ACTAVIS-2014-02926

PATIENT
  Age: 74 Year
  Sex: Female

DRUGS (5)
  1. ACYCLOVIR (UNKNOWN) [Suspect]
     Indication: HERPES ZOSTER
     Dosage: 2400 MG, DAILY
     Route: 048
     Dates: start: 20131014, end: 20131015
  2. LYRICA [Suspect]
     Indication: HERPES ZOSTER
     Dosage: 75 MG, DAILY
     Route: 048
     Dates: start: 20131014, end: 20131015
  3. DOBETIN                            /00056201/ [Concomitant]
     Indication: HERPES ZOSTER
     Dosage: 5000 MCG/2ML SOLUTION, UNK
     Route: 030
  4. TRIATEC                            /00116401/ [Concomitant]
     Indication: PRODUCT USED FOR UNKNOWN INDICATION
     Dosage: 5 MG, UNK
     Route: 065
  5. CARDIOASPIRIN [Concomitant]
     Indication: PRODUCT USED FOR UNKNOWN INDICATION
     Dosage: 100 MG, UNK
     Route: 065

REACTIONS (3)
  - Confusional state [Recovering/Resolving]
  - Dizziness [Recovering/Resolving]
  - Balance disorder [Recovering/Resolving]
